FAERS Safety Report 13090403 (Version 1)
Quarter: 2017Q1

REPORT INFORMATION
  Report Type: Spontaneous
  Country: US (occurrence: US)
  Receive Date: 20170105
  Receipt Date: 20170105
  Transmission Date: 20170428
  Serious: No
  Sender: FDA-Public Use
  Company Number: US-ENDO PHARMACEUTICALS INC.-2016-007080

PATIENT
  Age: 74 Year
  Sex: Male
  Weight: 95.34 kg

DRUGS (1)
  1. TESTOSTERONE GEL [Suspect]
     Active Substance: TESTOSTERONE
     Indication: BLOOD TESTOSTERONE DECREASED
     Route: 061
     Dates: start: 2014

REACTIONS (3)
  - Blood testosterone decreased [Not Recovered/Not Resolved]
  - Incorrect dose administered [Unknown]
  - Haematocrit increased [Not Recovered/Not Resolved]

NARRATIVE: CASE EVENT DATE: 20161101
